FAERS Safety Report 11182468 (Version 4)
Quarter: 2015Q3

REPORT INFORMATION
  Report Type: Report from Study
  Country: FR (occurrence: FR)
  Receive Date: 20150611
  Receipt Date: 20150925
  Transmission Date: 20151125
  Serious: Yes (Other)
  Sender: FDA-Public Use
  Company Number: FR-GLAXOSMITHKLINE INC.-FR2015GSK076981

PATIENT
  Age: 58 Year
  Sex: Male
  Weight: 70 kg

DRUGS (2)
  1. PAZOPANIB [Suspect]
     Active Substance: PAZOPANIB
     Indication: THYROID CANCER
     Dosage: 800 MG, QD
     Route: 048
     Dates: start: 20150410, end: 20150601
  2. LEVOTHYROXINE. [Concomitant]
     Active Substance: LEVOTHYROXINE
     Dosage: 175 UG, QD

REACTIONS (2)
  - Skin ulcer [Recovering/Resolving]
  - Condition aggravated [Recovering/Resolving]

NARRATIVE: CASE EVENT DATE: 20150602
